FAERS Safety Report 7173089-7 (Version None)
Quarter: 2010Q4

REPORT INFORMATION
  Report Type: 
  Country: None (occurrence: None)
  Receive Date: 20101219
  Receipt Date: 20100219
  Transmission Date: 20110411
  Serious: No
  Sender: FDA-Public Use
  Company Number: US-AMGEN-QUU394252

PATIENT

DRUGS (2)
  1. ENBREL [Suspect]
     Indication: JUVENILE ARTHRITIS
     Dosage: 25 MG, QWK
     Route: 058
     Dates: start: 20100205
  2. METHOTREXATE [Concomitant]
     Dosage: 17.5 MG, QWK
     Route: 048

REACTIONS (3)
  - COUGH [None]
  - MALAISE [None]
  - OROPHARYNGEAL PAIN [None]
